FAERS Safety Report 10146880 (Version 1)
Quarter: 2014Q2

REPORT INFORMATION
  Report Type: Spontaneous
  Country: US (occurrence: None)
  Receive Date: 20140430
  Receipt Date: 20140430
  Transmission Date: 20141212
  Serious: Yes (Hospitalization)
  Sender: FDA-Public Use
  Company Number: None

PATIENT
  Age: 65 Year
  Sex: Female

DRUGS (19)
  1. FUROSEMIDE [Suspect]
     Indication: OEDEMA
     Route: 048
     Dates: start: 20130724
  2. FEXOFENADINE [Concomitant]
  3. ALBUTEROL [Concomitant]
  4. ALLOPURINOL [Concomitant]
  5. ASA [Concomitant]
  6. BACLOFEN [Concomitant]
  7. COLCHICINE [Concomitant]
  8. DOCUSATE [Concomitant]
  9. DILTIAZEM [Concomitant]
  10. DIPHENHYDRAMINE [Concomitant]
  11. FOLIC ACID [Concomitant]
  12. ISOSORBIDE MONONITRATE [Concomitant]
  13. LISINOPRIL [Concomitant]
  14. METOPROLOL [Concomitant]
  15. NABUMETONE [Concomitant]
  16. PANTOPRAZOLE [Concomitant]
  17. POTASSIUM CHLORIDE [Concomitant]
  18. PREGABALIN [Concomitant]
  19. WARFARIN [Concomitant]

REACTIONS (1)
  - Renal injury [None]
